FAERS Safety Report 13076545 (Version 1)
Quarter: 2016Q4

REPORT INFORMATION
  Report Type: Spontaneous
  Country: US (occurrence: US)
  Receive Date: 20161230
  Receipt Date: 20161230
  Transmission Date: 20170207
  Serious: Yes (Death, Other)
  Sender: FDA-Public Use
  Company Number: US-JNJFOC-20161225794

PATIENT
  Sex: Female

DRUGS (1)
  1. XARELTO [Suspect]
     Active Substance: RIVAROXABAN
     Indication: PRODUCT USED FOR UNKNOWN INDICATION
     Route: 048
     Dates: start: 20130724, end: 20160122

REACTIONS (3)
  - Muscle haemorrhage [Unknown]
  - Death [Fatal]
  - Retroperitoneal haemorrhage [Unknown]

NARRATIVE: CASE EVENT DATE: 20160122
